FAERS Safety Report 21237742 (Version 2)
Quarter: 2022Q3

REPORT INFORMATION
  Report Type: Spontaneous
  Country: US (occurrence: US)
  Receive Date: 20220822
  Receipt Date: 20220916
  Transmission Date: 20221027
  Serious: No
  Sender: FDA-Public Use
  Company Number: US-PFIZER INC-PV202200046718

PATIENT
  Age: 68 Year
  Sex: Female
  Weight: 51.247 kg

DRUGS (1)
  1. PAXLOVID [Suspect]
     Active Substance: NIRMATRELVIR\RITONAVIR
     Indication: COVID-19 treatment
     Dosage: 300 MG NIRMATOVIR (TWO 150 MG TABS), 100 MG RITANOVIR, 2X/DAY
     Dates: start: 20220808

REACTIONS (2)
  - Dysgeusia [Recovered/Resolved]
  - Taste disorder [Unknown]
